FAERS Safety Report 7042329-7 (Version None)
Quarter: 2010Q4

REPORT INFORMATION
  Report Type: 
  Country: None (occurrence: None)
  Receive Date: 20101013
  Receipt Date: 20091119
  Transmission Date: 20110411
  Serious: No
  Sender: FDA-Public Use
  Company Number: US-ASTRAZENECA-2009SE23227

PATIENT
  Age: 79 Year
  Sex: Male

DRUGS (1)
  1. SYMBICORT [Suspect]
     Dosage: 80/4.5 AS ONE PUFF
     Route: 055
     Dates: start: 20090909

REACTIONS (3)
  - DRUG ADMINISTRATION ERROR [None]
  - DYSPHONIA [None]
  - NASOPHARYNGITIS [None]
